FAERS Safety Report 7577991-3 (Version None)
Quarter: 2011Q2

REPORT INFORMATION
  Report Type: 
  Country: None (occurrence: None)
  Receive Date: 20110628
  Receipt Date: 20110616
  Transmission Date: 20111010
  Serious: Yes (Hospitalization, Other)
  Sender: FDA-Public Use
  Company Number: US-ROCHE-785436

PATIENT
  Sex: Female
  Weight: 66.4 kg

DRUGS (1)
  1. CAPECITABINE [Suspect]
     Route: 048
     Dates: end: 20110516

REACTIONS (3)
  - DEHYDRATION [None]
  - METASTASES TO LIVER [None]
  - HYPOKALAEMIA [None]
